FAERS Safety Report 20615806 (Version 1)
Quarter: 2022Q1

REPORT INFORMATION
  Report Type: Spontaneous
  Country: US (occurrence: US)
  Receive Date: 20220321
  Receipt Date: 20220321
  Transmission Date: 20220423
  Serious: No
  Sender: FDA-Public Use
  Company Number: US-NOVARTISTESTPH-NVSC2022US063347

PATIENT
  Sex: Male

DRUGS (2)
  1. AFINITOR [Suspect]
     Active Substance: EVEROLIMUS
     Indication: Product used for unknown indication
     Dosage: UNK
     Route: 065
  2. LENVIMA [Concomitant]
     Active Substance: LENVATINIB
     Indication: Renal cell carcinoma
     Dosage: 10 MG, QD (STARTED APPROXIMATELY 3 WEEKS)
     Route: 065

REACTIONS (10)
  - Blood pressure abnormal [Unknown]
  - Oropharyngeal pain [Unknown]
  - Ear pain [Unknown]
  - Nasal dryness [Unknown]
  - Dysphonia [Unknown]
  - Oral pain [Unknown]
  - Dry skin [Unknown]
  - Arthralgia [Unknown]
  - Dry mouth [Unknown]
  - Weight decreased [Unknown]
